FAERS Safety Report 16840418 (Version 1)
Quarter: 2019Q3

REPORT INFORMATION
  Report Type: Spontaneous
  Country: US (occurrence: US)
  Receive Date: 20190923
  Receipt Date: 20190923
  Transmission Date: 20191005
  Serious: Yes (Other)
  Sender: FDA-Public Use
  Company Number: US-PFIZER INC-2017045079

PATIENT
  Age: 68 Year
  Sex: Male

DRUGS (14)
  1. GLUCOTROL [Concomitant]
     Active Substance: GLIPIZIDE
     Dosage: 10 MG, 1X/DAY (HALF HOUR BEFORE BREAKFAST)
     Route: 048
  2. LIPITOR [Concomitant]
     Active Substance: ATORVASTATIN CALCIUM
     Dosage: 20 MG, DAILY
     Route: 048
  3. JANUMET [Concomitant]
     Active Substance: METFORMIN HYDROCHLORIDE\SITAGLIPTIN PHOSPHATE
     Dosage: 1 DF, 2X/DAY [METFORMIN HYDROCHLORIDE- 50 MG]/[SITAGLIPTIN PHOSPHATE MONOHYDRATE-1000 MG]
     Route: 048
  4. LYRICA [Suspect]
     Active Substance: PREGABALIN
     Indication: NEURALGIA
  5. PHENERGAN [Concomitant]
     Active Substance: PROMETHAZINE HYDROCHLORIDE
     Indication: NAUSEA
     Dosage: UNK UNK, AS NEEDED (25 MG ORAL TAB TAKE 1/4 TO 1/2 TABLET EVERY 6 HOURS)
     Route: 048
  6. PRINZIDE [Concomitant]
     Active Substance: HYDROCHLOROTHIAZIDE\LISINOPRIL
     Dosage: UNK, DAILY ((LISINOPRIL- 20 MG/HYDROCHLOROTHIAZIDE- 25 MG, DAILY (TAKE ONE-HALF TABLET)))
     Route: 048
  7. COUMADINE [Concomitant]
     Active Substance: WARFARIN SODIUM
     Dosage: 2 MG, UNK (TAKE ORALLY AS DIRECTED)
     Route: 048
  8. ZESTORETIC [Concomitant]
     Active Substance: HYDROCHLOROTHIAZIDE\LISINOPRIL
     Dosage: UNK, DAILY ([LISINOPRIL- 20 MG]/[HYDROCHLOROTHIAZIDE - 25MG], DAILY (TAKE ONE-HALF ))
     Route: 048
  9. NORCO [Concomitant]
     Active Substance: ACETAMINOPHEN\HYDROCODONE BITARTRATE
     Indication: PAIN
     Dosage: UNK, AS NEEDED (HYDROCODONE-10 MG/ACETAMINOPHEN- 325MG, AS NEEDED (1 TABLET EVERY 6 HOURS))
     Route: 048
  10. HUMULIN N [Concomitant]
     Active Substance: INSULIN HUMAN
     Indication: BLOOD GLUCOSE ABNORMAL
     Dosage: UNK (AS DIRECTED)
     Route: 058
  11. XALATAN [Concomitant]
     Active Substance: LATANOPROST
     Indication: GLAUCOMA
     Dosage: 1 GTT, 1X/DAY (INSTILL 1 DROP IN BOTH EYES DAILY AT BEDTIME)
  12. COUMADINE [Concomitant]
     Active Substance: WARFARIN SODIUM
     Indication: COAGULOPATHY
     Dosage: 10 MG, UNK (TAKE ORALLY AS DIRECTED)
     Route: 048
  13. PHENERGAN [Concomitant]
     Active Substance: PROMETHAZINE HYDROCHLORIDE
     Indication: VOMITING
  14. LYRICA [Suspect]
     Active Substance: PREGABALIN
     Indication: NERVE INJURY
     Dosage: 75 MG, 3X/DAY
     Route: 048

REACTIONS (1)
  - Neoplasm malignant [Unknown]
